FAERS Safety Report 13151597 (Version 3)
Quarter: 2017Q1

REPORT INFORMATION
  Report Type: Spontaneous
  Country: BR (occurrence: BR)
  Receive Date: 20170125
  Receipt Date: 20170202
  Transmission Date: 20170428
  Serious: Yes (Other)
  Sender: FDA-Public Use
  Company Number: BR-ELI_LILLY_AND_COMPANY-BR201701005884

PATIENT
  Age: 62 Year
  Sex: Female
  Weight: 72 kg

DRUGS (2)
  1. HUMALOG MIX75/25 [Suspect]
     Active Substance: INSULIN LISPRO
     Indication: DIABETES MELLITUS
     Dosage: 18 IU, EACH MORNING
     Route: 058
     Dates: start: 201608
  2. HUMALOG MIX75/25 [Suspect]
     Active Substance: INSULIN LISPRO
     Dosage: 8 IU, EACH EVENING
     Route: 058
     Dates: start: 201608

REACTIONS (8)
  - Injection site pain [Unknown]
  - Malaise [Not Recovered/Not Resolved]
  - Drug dose omission [Unknown]
  - Incorrect product storage [Unknown]
  - Blood glucose increased [Unknown]
  - Hyperglycaemia [Recovering/Resolving]
  - Drug dose omission [Not Recovered/Not Resolved]
  - Visual impairment [Unknown]

NARRATIVE: CASE EVENT DATE: 20170116
